FAERS Safety Report 19983488 (Version 1)
Quarter: 2021Q4

REPORT INFORMATION
  Report Type: Other
  Country: CN (occurrence: CN)
  Receive Date: 20211022
  Receipt Date: 20211022
  Transmission Date: 20220303
  Serious: Yes (Other)
  Sender: FDA-Public Use
  Company Number: CN-ROCHE-2934753

PATIENT

DRUGS (4)
  1. MYCOPHENOLATE MOFETIL [Suspect]
     Active Substance: MYCOPHENOLATE MOFETIL
     Indication: Immunosuppression
     Dosage: 1-1.5 G/D FOR 6 MONTHS AND THEN DOSED BY HALF FOR 6 MONTHS.
     Route: 065
  2. CYCLOPHOSPHAMIDE [Suspect]
     Active Substance: CYCLOPHOSPHAMIDE
     Indication: Immunosuppression
     Dosage: 50 MG/DAY FOR 5 MONTHS, AND PULSE CTX WAS PRESCRIBED AT 0.8 G PER MONTH FOR 6 MONTHS
     Route: 065
  3. PREDNISONE [Suspect]
     Active Substance: PREDNISONE
     Indication: Immunosuppression
     Dosage: 0.6-1.0 MG/KG/DAY FOR 2 MONTHS WITH SUBSEQUENT GRADUAL REDUCTION (5 MG/DAY PER MONTH, TAPERED TO 10M
     Route: 048
  4. PREDNISONE [Suspect]
     Active Substance: PREDNISONE
     Dosage: ORAL PREDNISONE AT A DOSE OF?0.4-0.6 MG/KG/DAY FOR 2-3 MONTHS WITH SUBSEQUENT GRADUAL REDUCTION (5 M
     Route: 048

REACTIONS (5)
  - Pneumonia [Unknown]
  - Enteritis infectious [Unknown]
  - Diabetes mellitus [Unknown]
  - Leukopenia [Unknown]
  - Alanine aminotransferase increased [Unknown]
